FAERS Safety Report 24107878 (Version 10)
Quarter: 2025Q2

REPORT INFORMATION
  Report Type: Report from Study
  Country: CN (occurrence: CN)
  Receive Date: 20240718
  Receipt Date: 20250523
  Transmission Date: 20250716
  Serious: Yes (Life-Threatening, Hospitalization)
  Sender: ROCHE
  Company Number: CN-ROCHE-10000024666

PATIENT
  Age: 61 Year
  Sex: Male
  Weight: 83 kg

DRUGS (63)
  1. POLATUZUMAB VEDOTIN [Suspect]
     Active Substance: POLATUZUMAB VEDOTIN
     Indication: Diffuse large B-cell lymphoma
     Route: 042
     Dates: start: 20240408, end: 20240408
  2. POLATUZUMAB VEDOTIN [Suspect]
     Active Substance: POLATUZUMAB VEDOTIN
     Route: 042
     Dates: start: 20240619, end: 20240619
  3. RITUXIMAB [Suspect]
     Active Substance: RITUXIMAB
     Indication: Diffuse large B-cell lymphoma
     Route: 042
  4. RITUXIMAB [Suspect]
     Active Substance: RITUXIMAB
     Route: 042
     Dates: start: 20240103, end: 20240103
  5. RITUXIMAB [Suspect]
     Active Substance: RITUXIMAB
     Route: 042
     Dates: start: 20240501, end: 20240501
  6. RITUXIMAB [Suspect]
     Active Substance: RITUXIMAB
     Route: 042
     Dates: start: 20240528, end: 20240528
  7. RITUXIMAB [Suspect]
     Active Substance: RITUXIMAB
     Route: 042
     Dates: start: 20240408, end: 20240408
  8. RITUXIMAB [Suspect]
     Active Substance: RITUXIMAB
     Route: 042
     Dates: start: 20240619, end: 20240619
  9. CYCLOPHOSPHAMIDE [Suspect]
     Active Substance: CYCLOPHOSPHAMIDE
     Indication: Diffuse large B-cell lymphoma
     Route: 042
     Dates: start: 20240408, end: 20240409
  10. CYCLOPHOSPHAMIDE [Suspect]
     Active Substance: CYCLOPHOSPHAMIDE
     Route: 042
     Dates: start: 20240619, end: 20240620
  11. CYCLOPHOSPHAMIDE [Suspect]
     Active Substance: CYCLOPHOSPHAMIDE
     Dosage: SUBSEQUENT DOSE WAS ADMINISTERED ON 17/FEB/2024, END DATE:18/FEB/2024, ON 14/MAR/2024, END DATE: 15/
     Route: 042
     Dates: start: 20240103, end: 20240104
  12. EPIRUBICIN [Suspect]
     Active Substance: EPIRUBICIN
     Indication: Diffuse large B-cell lymphoma
     Dosage: SUBSEQUENT DOSE WAS ADMINISTERED ON 17/FEB/2024, END DATE 18/FEB/2024, ON 14/MAR/2024, END DATE 15/M
     Route: 042
     Dates: start: 20240408, end: 20240409
  13. EPIRUBICIN [Suspect]
     Active Substance: EPIRUBICIN
     Dosage: SUBSEQUENT DOSE WAS ADMINISTERED ON 17/FEB/2024, END DATE 18/FEB/2024, ON 14/MAR/2024, END DATE 15/M
     Route: 042
     Dates: start: 20240103, end: 20240105
  14. PREDNISONE [Suspect]
     Active Substance: PREDNISONE
     Indication: Diffuse large B-cell lymphoma
     Route: 048
     Dates: start: 20240408, end: 20240411
  15. PREDNISONE [Suspect]
     Active Substance: PREDNISONE
     Route: 048
     Dates: start: 20240619, end: 20240623
  16. PREDNISONE [Suspect]
     Active Substance: PREDNISONE
     Route: 048
     Dates: start: 20240103, end: 20240108
  17. DOXORUBICIN [Suspect]
     Active Substance: DOXORUBICIN
     Indication: Diffuse large B-cell lymphoma
     Route: 065
  18. VINDESINE [Suspect]
     Active Substance: VINDESINE
     Indication: Diffuse large B-cell lymphoma
     Dosage: SUBSEQUENT DOSE WAS ADMINISTERED ON 17/FEB/2024, END DATE 18/FEB/2024, ON 14/MAR/2024, END DATE 15/M
     Route: 042
     Dates: start: 20240103, end: 20240104
  19. EPIRUBICIN HYDROCHLORIDE [Suspect]
     Active Substance: EPIRUBICIN HYDROCHLORIDE
     Indication: Diffuse large B-cell lymphoma
     Route: 042
     Dates: end: 20240620
  20. ATORVASTATIN CALCIUM [Concomitant]
     Active Substance: ATORVASTATIN CALCIUM
     Route: 048
     Dates: start: 20240407
  21. EZETIMIBE [Concomitant]
     Active Substance: EZETIMIBE
     Route: 048
     Dates: start: 20240407
  22. DEXAMETHASONE SODIUM PHOSPHATE [Concomitant]
     Active Substance: DEXAMETHASONE SODIUM PHOSPHATE
     Route: 042
     Dates: start: 20240528, end: 20240528
  23. PROMETHAZINE HYDROCHLORIDE [Concomitant]
     Active Substance: PROMETHAZINE HYDROCHLORIDE
     Route: 030
     Dates: start: 20240528, end: 20240528
  24. LORATADINE [Concomitant]
     Active Substance: LORATADINE
     Route: 048
     Dates: start: 20240528, end: 20240528
  25. ENTECAVIR [Concomitant]
     Active Substance: ENTECAVIR
     Route: 048
     Dates: start: 20240529, end: 20240531
  26. ENTECAVIR [Concomitant]
     Active Substance: ENTECAVIR
     Route: 048
     Dates: start: 2024
  27. LEVOTHYROXINE [Concomitant]
     Active Substance: LEVOTHYROXINE
     Route: 048
     Dates: start: 20240530, end: 20240530
  28. ONDANSETRON HYDROCHLORIDE [Concomitant]
     Active Substance: ONDANSETRON HYDROCHLORIDE
     Route: 048
     Dates: start: 20240528, end: 20240528
  29. ONDANSETRON HYDROCHLORIDE [Concomitant]
     Active Substance: ONDANSETRON HYDROCHLORIDE
     Route: 048
     Dates: start: 20240501, end: 20240503
  30. SODIUM BICARBONATE [Concomitant]
     Active Substance: SODIUM BICARBONATE
     Route: 048
     Dates: start: 20240528, end: 20240531
  31. SODIUM BICARBONATE [Concomitant]
     Active Substance: SODIUM BICARBONATE
     Route: 048
     Dates: start: 2024
  32. SODIUM BICARBONATE [Concomitant]
     Active Substance: SODIUM BICARBONATE
     Route: 048
     Dates: start: 20240501, end: 20240501
  33. SODIUM BICARBONATE [Concomitant]
     Active Substance: SODIUM BICARBONATE
     Route: 048
     Dates: start: 20240502, end: 20240504
  34. POTASSIUM CHLORIDE [Concomitant]
     Active Substance: POTASSIUM CHLORIDE
     Route: 042
     Dates: start: 20240528, end: 20240530
  35. POTASSIUM CHLORIDE [Concomitant]
     Active Substance: POTASSIUM CHLORIDE
     Route: 042
     Dates: start: 20240408, end: 20240410
  36. POTASSIUM CHLORIDE [Concomitant]
     Active Substance: POTASSIUM CHLORIDE
     Route: 042
     Dates: start: 20240501, end: 20240502
  37. TORSEMIDE [Concomitant]
     Active Substance: TORSEMIDE
     Route: 048
     Dates: start: 20240528, end: 20240531
  38. TORSEMIDE [Concomitant]
     Active Substance: TORSEMIDE
     Route: 048
     Dates: end: 20240422
  39. TORSEMIDE [Concomitant]
     Active Substance: TORSEMIDE
     Route: 048
     Dates: start: 20240408, end: 20240410
  40. TORSEMIDE [Concomitant]
     Active Substance: TORSEMIDE
     Route: 048
     Dates: start: 20240501, end: 20240501
  41. TORSEMIDE [Concomitant]
     Active Substance: TORSEMIDE
     Route: 048
     Dates: start: 20240502, end: 20240504
  42. DEXRAZOXANE [Concomitant]
     Active Substance: DEXRAZOXANE
     Route: 042
     Dates: start: 20240529, end: 20240529
  43. DEXRAZOXANE [Concomitant]
     Active Substance: DEXRAZOXANE
     Route: 042
     Dates: start: 20240408, end: 20240409
  44. DEXRAZOXANE [Concomitant]
     Active Substance: DEXRAZOXANE
     Route: 042
     Dates: start: 20240501, end: 20240502
  45. omeprazole enteric coated capsule [Concomitant]
     Route: 048
     Dates: start: 2024
  46. omeprazole enteric coated capsule [Concomitant]
     Route: 048
     Dates: start: 20240501, end: 20240504
  47. SULFAMETHOXAZOLE [Concomitant]
     Active Substance: SULFAMETHOXAZOLE
     Route: 048
     Dates: start: 2024
  48. Indobuprofen [Concomitant]
     Route: 048
     Dates: start: 20240407
  49. MONTMORILLONITE [Concomitant]
     Active Substance: MONTMORILLONITE
     Route: 048
     Dates: start: 20240626, end: 20240627
  50. berberine hydrochloride tablets [Concomitant]
     Route: 048
     Dates: start: 20240627, end: 20240630
  51. berberine hydrochloride tablets [Concomitant]
     Route: 048
     Dates: start: 20240626, end: 20240627
  52. CILASTATIN SODIUM\IMIPENEM [Concomitant]
     Active Substance: CILASTATIN SODIUM\IMIPENEM
     Route: 042
     Dates: start: 20240607, end: 20240607
  53. CILASTATIN SODIUM\IMIPENEM [Concomitant]
     Active Substance: CILASTATIN SODIUM\IMIPENEM
     Route: 042
     Dates: start: 20240418, end: 20240421
  54. CILASTATIN SODIUM\IMIPENEM [Concomitant]
     Active Substance: CILASTATIN SODIUM\IMIPENEM
     Route: 042
     Dates: start: 20240606
  55. ERYTHROMYCIN [Concomitant]
     Active Substance: ERYTHROMYCIN
     Dates: start: 20240602
  56. Pegylated recombinant human granulocyte stimulating factor injection [Concomitant]
     Route: 058
     Dates: start: 20240531, end: 20240531
  57. Pegylated recombinant human granulocyte stimulating factor injection [Concomitant]
     Route: 058
     Dates: start: 20240504, end: 20240504
  58. Lactulose oral liquid [Concomitant]
     Route: 048
     Dates: end: 20240503
  59. Lactulose oral liquid [Concomitant]
     Route: 048
     Dates: start: 20240618
  60. Lactulose oral liquid [Concomitant]
     Route: 048
     Dates: start: 20240407, end: 20240407
  61. Chlorhexidine gargle compound [Concomitant]
     Route: 048
     Dates: start: 20240416, end: 20240422
  62. FEBUXOSTAT [Concomitant]
     Active Substance: FEBUXOSTAT
     Route: 048
     Dates: start: 20240417, end: 20240422
  63. Cefaclor extended release tablets [Concomitant]
     Route: 048
     Dates: start: 20240410

REACTIONS (4)
  - Respiratory tract infection [Recovered/Resolved]
  - Leukopenia [Recovered/Resolved]
  - Febrile neutropenia [Recovered/Resolved]
  - Gastrointestinal infection [Recovered/Resolved]

NARRATIVE: CASE EVENT DATE: 20240418
